FAERS Safety Report 9190888 (Version 1)
Quarter: 2013Q1

REPORT INFORMATION
  Report Type: Spontaneous
  Country: US (occurrence: None)
  Receive Date: 20120703
  Receipt Date: 20120703
  Transmission Date: 20140127
  Serious: No
  Sender: FDA-Public Use
  Company Number: PHEH2012US008832

PATIENT
  Age: 34 Year
  Sex: Female

DRUGS (4)
  1. GILENYA (FTY) CAPSULE [Suspect]
     Route: 048
     Dates: start: 20120411
  2. OVCON-50 (ETHINYLESTRADIOL, NORETHISTERONE) [Concomitant]
  3. ASTEPRO NASAL SPRAY, 0.5% [Concomitant]
  4. ACETAMINOPHEN (PARACETAMOL) [Concomitant]

REACTIONS (1)
  - Fatigue [None]
